FAERS Safety Report 15734857 (Version 1)
Quarter: 2018Q4

REPORT INFORMATION
  Report Type: Spontaneous
  Country: US (occurrence: US)
  Receive Date: 20181218
  Receipt Date: 20181218
  Transmission Date: 20190205
  Serious: No
  Sender: FDA-Public Use
  Company Number: US-DSJP-DSU-2017-149247

PATIENT

DRUGS (1)
  1. BENICAR HCT [Suspect]
     Active Substance: HYDROCHLOROTHIAZIDE\OLMESARTAN MEDOXOMIL
     Indication: ESSENTIAL HYPERTENSION
     Dosage: 40/12.5MG, QD
     Route: 048
     Dates: start: 20070803

REACTIONS (5)
  - Sprue-like enteropathy [Not Recovered/Not Resolved]
  - Diverticulum intestinal [Not Recovered/Not Resolved]
  - Large intestine polyp [Unknown]
  - Haemorrhoids [Not Recovered/Not Resolved]
  - Irritable bowel syndrome [Not Recovered/Not Resolved]

NARRATIVE: CASE EVENT DATE: 2009
